FAERS Safety Report 15280201 (Version 2)
Quarter: 2019Q2

REPORT INFORMATION
  Report Type: Spontaneous
  Country: US (occurrence: US)
  Receive Date: 20180815
  Receipt Date: 20190402
  Transmission Date: 20190711
  Serious: Yes (Hospitalization, Other)
  Sender: FDA-Public Use
  Company Number: US-CONCORDIA PHARMACEUTICALS INC.-GSH201808-002975

PATIENT
  Age: 36 Year
  Sex: Female

DRUGS (6)
  1. BREXPIPRAZOLE [Suspect]
     Active Substance: BREXPIPRAZOLE
     Indication: BIPOLAR DISORDER
  2. ALPRAZOLAM. [Concomitant]
     Active Substance: ALPRAZOLAM
     Indication: BIPOLAR DISORDER
  3. TRANYLCYPROMINE [Suspect]
     Active Substance: TRANYLCYPROMINE
     Indication: BIPOLAR DISORDER
  4. TRANYLCYPROMINE [Suspect]
     Active Substance: TRANYLCYPROMINE
     Indication: ANTIDEPRESSANT THERAPY
     Dosage: IN THE MORNING
  5. ARMODAFINIL. [Suspect]
     Active Substance: ARMODAFINIL
     Indication: SOMNOLENCE
  6. ARMODAFINIL. [Suspect]
     Active Substance: ARMODAFINIL
     Indication: BIPOLAR DISORDER

REACTIONS (3)
  - Hypertensive crisis [Recovering/Resolving]
  - Contraindicated product administered [Unknown]
  - Musculoskeletal stiffness [Recovering/Resolving]
